FAERS Safety Report 5628267-2 (Version None)
Quarter: 2008Q1

REPORT INFORMATION
  Report Type: 
  Country: None (occurrence: None)
  Receive Date: 20080215
  Receipt Date: 20080208
  Transmission Date: 20080703
  Serious: Yes (Other)
  Sender: FDA-Public Use
  Company Number: US-PURDUE-USA_2008_0031506

PATIENT
  Age: 67 Year
  Sex: Female

DRUGS (15)
  1. OXYCONTIN [Suspect]
     Indication: PAIN
  2. METRONIDAZOLE HCL [Suspect]
     Indication: DIVERTICULITIS
     Dates: start: 20061110, end: 20061125
  3. CLONAZEPAM [Suspect]
     Indication: ANXIETY
  4. LORTAB [Suspect]
     Indication: PAIN
  5. IMODIUM [Suspect]
     Indication: DIARRHOEA
  6. SKELAXIN [Suspect]
     Indication: MUSCLE RELAXANT THERAPY
  7. ACETAMINOPHEN [Concomitant]
     Indication: DRUG USE FOR UNKNOWN INDICATION
  8. PROZAC [Concomitant]
     Indication: DRUG USE FOR UNKNOWN INDICATION
  9. SYNTHROID [Concomitant]
     Indication: DRUG USE FOR UNKNOWN INDICATION
  10. ATENOLOL [Concomitant]
  11. MONTELUKAST SODIUM [Concomitant]
     Indication: DRUG USE FOR UNKNOWN INDICATION
  12. RHINOCORT [Concomitant]
  13. NEXIUM [Concomitant]
     Indication: DRUG USE FOR UNKNOWN INDICATION
  14. LASIX [Concomitant]
  15. OLMESARTAN MEDOXOMIL [Concomitant]
     Indication: DRUG USE FOR UNKNOWN INDICATION

REACTIONS (11)
  - BACK INJURY [None]
  - BACK PAIN [None]
  - COMPRESSION FRACTURE [None]
  - DIARRHOEA [None]
  - FALL [None]
  - FATIGUE [None]
  - INTERVERTEBRAL DISC DISORDER [None]
  - NAUSEA [None]
  - ORAL INTAKE REDUCED [None]
  - OSTEOARTHRITIS [None]
  - VOMITING [None]
